FAERS Safety Report 6236619-5 (Version None)
Quarter: 2009Q2

REPORT INFORMATION
  Report Type: 
  Country: None (occurrence: None)
  Receive Date: 20090619
  Receipt Date: 20080801
  Transmission Date: 20091009
  Serious: No
  Sender: FDA-Public Use
  Company Number: US-ASTRAZENECA-2008UW14620

PATIENT
  Age: 184 Month
  Sex: Male
  Weight: 122.5 kg

DRUGS (3)
  1. ATACAND [Suspect]
     Indication: HYPERTENSION
     Route: 048
     Dates: start: 20061221
  2. METFORMIN HCL [Concomitant]
     Route: 048
     Dates: start: 20050501
  3. ALTACE [Concomitant]
     Dosage: 10 MG 4 TABS EVERYDAY
     Route: 048
     Dates: start: 20050501

REACTIONS (1)
  - PROTEINURIA [None]
